FAERS Safety Report 11628742 (Version 1)
Quarter: 2015Q4

REPORT INFORMATION
  Report Type: Spontaneous
  Country: US (occurrence: US)
  Receive Date: 20151014
  Receipt Date: 20151014
  Transmission Date: 20160304
  Serious: No
  Sender: FDA-Public Use
  Company Number: US-BAYER-2015-441563

PATIENT
  Age: 65 Year
  Sex: Male
  Weight: 102.4 kg

DRUGS (1)
  1. ALEVE [Suspect]
     Active Substance: NAPROXEN SODIUM
     Indication: ANALGESIC THERAPY
     Dosage: 3 DF, QD
     Route: 048
     Dates: start: 201509

REACTIONS (1)
  - Product use issue [None]

NARRATIVE: CASE EVENT DATE: 201509
